FAERS Safety Report 12041738 (Version 1)
Quarter: 2016Q1

REPORT INFORMATION
  Report Type: Spontaneous
  Country: US (occurrence: US)
  Receive Date: 20160208
  Receipt Date: 20160208
  Transmission Date: 20160526
  Serious: No
  Sender: FDA-Public Use
  Company Number: US-BIOGEN-2009BI006322

PATIENT
  Sex: Female

DRUGS (1)
  1. AVONEX [Suspect]
     Active Substance: INTERFERON BETA-1A
     Indication: MULTIPLE SCLEROSIS
     Route: 030
     Dates: start: 20030815

REACTIONS (12)
  - Road traffic accident [Unknown]
  - Anxiety [Unknown]
  - Hypersomnia [Unknown]
  - Erythema [Unknown]
  - Weight increased [Unknown]
  - Depression [Unknown]
  - Brain injury [Unknown]
  - Mental impairment [Unknown]
  - Nasopharyngitis [Unknown]
  - Pain in extremity [Unknown]
  - Musculoskeletal disorder [Unknown]
  - Malaise [Unknown]
